FAERS Safety Report 15049877 (Version 2)
Quarter: 2018Q2

REPORT INFORMATION
  Report Type: Spontaneous
  Country: FR (occurrence: FR)
  Receive Date: 20180622
  Receipt Date: 20180622
  Transmission Date: 20180711
  Serious: Yes (Death)
  Sender: FDA-Public Use
  Company Number: PHHY2018FR027171

PATIENT
  Age: 40 Year
  Sex: Female

DRUGS (3)
  1. TERBINAFINE. [Suspect]
     Active Substance: TERBINAFINE
     Indication: FUNGAL INFECTION
     Route: 062
  2. 5-FLUOROCYTOSINE [Suspect]
     Active Substance: FLUCYTOSINE
     Indication: FUNGAL INFECTION
     Route: 065
  3. VORICONAZOLE. [Suspect]
     Active Substance: VORICONAZOLE
     Indication: FUNGAL INFECTION
     Route: 065

REACTIONS (1)
  - Therapy non-responder [Fatal]
